FAERS Safety Report 4340928-4 (Version None)
Quarter: 2004Q2

REPORT INFORMATION
  Report Type: 
  Country: None (occurrence: None)
  Receive Date: 20040413
  Receipt Date: 20040401
  Transmission Date: 20050107
  Serious: Yes (Death, Hospitalization)
  Sender: FDA-Public Use
  Company Number: 163-20785-03120526

PATIENT
  Age: 72 Year
  Sex: Female

DRUGS (2)
  1. THALOMID [Suspect]
     Indication: SKIN DISORDER
     Dosage: 100 MG, QD, ORAL;  50 MG, DAILY, ORAL
     Route: 048
     Dates: start: 20030530, end: 20030729
  2. THALOMID [Suspect]
     Indication: SKIN DISORDER
     Dosage: 100 MG, QD, ORAL;  50 MG, DAILY, ORAL
     Route: 048
     Dates: start: 20030730, end: 20031101

REACTIONS (7)
  - CALCIPHYLAXIS [None]
  - CARDIAC FAILURE CONGESTIVE [None]
  - HAEMODIALYSIS [None]
  - PNEUMONIA [None]
  - RENAL FAILURE [None]
  - RENAL INTERSTITIAL FIBROSIS [None]
  - SEPSIS [None]
